FAERS Safety Report 8133237-9 (Version None)
Quarter: 2012Q1

REPORT INFORMATION
  Report Type: 
  Country: None (occurrence: None)
  Receive Date: 20120213
  Receipt Date: 20120210
  Transmission Date: 20120608
  Serious: Yes (Death, Other)
  Sender: FDA-Public Use
  Company Number: PHFR2011GB06114

PATIENT
  Sex: Male
  Weight: 73 kg

DRUGS (6)
  1. ESOMEPRAZOLE [Concomitant]
     Dosage: 40 MG, UNK
  2. LAMOTRIGINE [Concomitant]
     Dosage: 1 G, UNK
     Route: 048
  3. CLOZARIL [Suspect]
     Dosage: 450 MG
     Route: 048
  4. AMISULPRIDE [Concomitant]
     Dosage: 20 MG, UNK
     Route: 048
  5. VALPROATE SODIUM [Concomitant]
     Dosage: 2 G, UNK
     Route: 048
  6. CLOZARIL [Suspect]
     Indication: SCHIZOPHRENIA
     Dosage: 900 MG/DAY
     Route: 048
     Dates: start: 19900907

REACTIONS (4)
  - LUNG NEOPLASM MALIGNANT [None]
  - LOBAR PNEUMONIA [None]
  - HAEMOPTYSIS [None]
  - PNEUMONIA [None]
